FAERS Safety Report 5585988-8 (Version None)
Quarter: 2007Q4

REPORT INFORMATION
  Report Type: 
  Country: None (occurrence: None)
  Receive Date: 20071203
  Receipt Date: 20070829
  Transmission Date: 20080405
  Serious: Yes (Other)
  Sender: FDA-Public Use
  Company Number: 2007062008

PATIENT
  Age: 17 Year
  Sex: Male
  Weight: 35 kg

DRUGS (5)
  1. ZYVOX [Suspect]
     Indication: WOUND INFECTION
     Dosage: 1200 MG (600 MG,2 IN 1 D)
     Dates: start: 20070723, end: 20070723
  2. CLONAZEPAM [Concomitant]
  3. RIFAMPICIN [Concomitant]
  4. NEURONTIN [Concomitant]
  5. DEPAKOTE [Concomitant]

REACTIONS (2)
  - CONVULSION [None]
  - GRAND MAL CONVULSION [None]
